FAERS Safety Report 21984595 (Version 1)
Quarter: 2023Q1

REPORT INFORMATION
  Report Type: Report from Study
  Country: SE (occurrence: SE)
  Receive Date: 20230213
  Receipt Date: 20230213
  Transmission Date: 20230418
  Serious: Yes (Other)
  Sender: FDA-Public Use
  Company Number: SE-PFIZER INC-202300058552

PATIENT
  Sex: Female

DRUGS (4)
  1. VORICONAZOLE [Suspect]
     Active Substance: VORICONAZOLE
     Indication: Candida infection
     Dosage: UNK
     Route: 042
  2. FLUCONAZOLE [Concomitant]
     Active Substance: FLUCONAZOLE
     Indication: Candida infection
     Dosage: UNK
     Route: 048
     Dates: start: 2020
  3. BARICITINIB [Concomitant]
     Active Substance: BARICITINIB
     Indication: Mucocutaneous candidiasis
     Dosage: 2 MG, DAILY (0.03 MG/KG)
     Route: 048
     Dates: start: 2020
  4. VALACYCLOVIR [Concomitant]
     Active Substance: VALACYCLOVIR HYDROCHLORIDE
     Indication: Varicella zoster virus infection
     Dosage: UNK
     Route: 048
     Dates: start: 2020

REACTIONS (1)
  - Mucosal inflammation [Unknown]
